FAERS Safety Report 8832367 (Version 1)
Quarter: 2012Q4

REPORT INFORMATION
  Report Type: 
  Country: AU (occurrence: AU)
  Receive Date: 20121009
  Receipt Date: 20121009
  Transmission Date: 20130627
  Serious: Yes (Other)
  Sender: FDA-Public Use
  Company Number: AU-BAXTER-2012BAX017148

PATIENT
  Sex: Female
  Weight: 54.3 kg

DRUGS (5)
  1. BAXTER 0.9% SODIUM CHLORIDE 450MG_50ML INJECTION BP BAG AHB1306_AHB136 [Suspect]
     Indication: MEDICATION DILUTION
     Dates: start: 20120905, end: 20120905
  2. GEMCITABINE [Suspect]
     Indication: LUNG CANCER
     Dates: start: 20120905, end: 20120905
  3. GRANISETRON [Concomitant]
     Indication: PREMEDICATION
     Route: 048
     Dates: start: 20120905
  4. DEXAMETHASONE [Concomitant]
     Indication: PREMEDICATION
     Route: 048
     Dates: start: 20120905
  5. INTRAGAM [Concomitant]
     Indication: DRUG USE FOR UNKNOWN INDICATION
     Dates: start: 200909

REACTIONS (1)
  - Infusion related reaction [Recovered/Resolved]
